FAERS Safety Report 9631830 (Version 1)
Quarter: 2013Q4

REPORT INFORMATION
  Report Type: Spontaneous
  Country: JP (occurrence: JP)
  Receive Date: 20131018
  Receipt Date: 20131018
  Transmission Date: 20140711
  Serious: Yes (Other)
  Sender: FDA-Public Use
  Company Number: JP-WATSON-2013-18079

PATIENT
  Age: 36 Year
  Sex: Female

DRUGS (3)
  1. TRAZODONE HYDROCHLORIDE (WATSON LABORATORIES) [Suspect]
     Indication: POST-TRAUMATIC STRESS DISORDER
     Dosage: 25 MG, QPM
     Route: 065
  2. TRAZODONE HYDROCHLORIDE (WATSON LABORATORIES) [Suspect]
     Dosage: 50 MG, QPM
     Route: 065
  3. PAROXETINE [Suspect]
     Indication: POST-TRAUMATIC STRESS DISORDER
     Dosage: 10-20 MG
     Route: 065

REACTIONS (3)
  - Suicidal ideation [Unknown]
  - Condition aggravated [Unknown]
  - Insomnia [Unknown]
